FAERS Safety Report 9355413 (Version 2)
Quarter: 2013Q3

REPORT INFORMATION
  Report Type: Spontaneous
  Country: US (occurrence: US)
  Receive Date: 20130619
  Receipt Date: 20130715
  Transmission Date: 20140515
  Serious: Yes (Other)
  Sender: FDA-Public Use
  Company Number: US-JNJFOC-20130605279

PATIENT
  Age: 61 Year
  Sex: Male
  Weight: 86.18 kg

DRUGS (10)
  1. STELARA [Suspect]
     Indication: PSORIATIC ARTHROPATHY
     Route: 058
     Dates: start: 201301
  2. STELARA [Suspect]
     Indication: PSORIATIC ARTHROPATHY
     Route: 058
     Dates: start: 201003, end: 2012
  3. STELARA [Suspect]
     Indication: RHEUMATOID ARTHRITIS
     Route: 058
     Dates: start: 201301
  4. STELARA [Suspect]
     Indication: RHEUMATOID ARTHRITIS
     Route: 058
     Dates: start: 201003, end: 2012
  5. STELARA [Suspect]
     Indication: PSORIASIS
     Route: 058
     Dates: start: 201301
  6. STELARA [Suspect]
     Indication: PSORIASIS
     Route: 058
     Dates: start: 201003, end: 2012
  7. HUMIRA [Suspect]
     Indication: PSORIATIC ARTHROPATHY
     Route: 065
     Dates: start: 201210, end: 201212
  8. HUMIRA [Suspect]
     Indication: RHEUMATOID ARTHRITIS
     Route: 065
     Dates: start: 201210, end: 201212
  9. HUMIRA [Suspect]
     Indication: PSORIASIS
     Route: 065
     Dates: start: 201210, end: 201212
  10. PRILOSEC [Concomitant]
     Indication: GASTROOESOPHAGEAL REFLUX DISEASE
     Route: 065

REACTIONS (3)
  - Neuropathy peripheral [Recovering/Resolving]
  - Off label use [Unknown]
  - Drug ineffective for unapproved indication [Unknown]
